FAERS Safety Report 6650117-6 (Version None)
Quarter: 2010Q1

REPORT INFORMATION
  Report Type: 
  Country: None (occurrence: None)
  Receive Date: 20100325
  Receipt Date: 20090914
  Transmission Date: 20100710
  Serious: No
  Sender: FDA-Public Use
  Company Number: US-KINGPHARMUSA00001-K200901128

PATIENT
  Age: 54 Year
  Sex: Male
  Weight: 81.633 kg

DRUGS (2)
  1. ALTACE [Suspect]
     Dosage: 5 MG, QD
     Route: 048
     Dates: start: 20090301, end: 20090913
  2. ANTIHYPERTENSIVES [Concomitant]
     Dosage: UNK

REACTIONS (2)
  - COUGH [None]
  - THROAT IRRITATION [None]
